FAERS Safety Report 23288358 (Version 1)
Quarter: 2023Q4

REPORT INFORMATION
  Report Type: Spontaneous
  Country: US (occurrence: US)
  Receive Date: 20231212
  Receipt Date: 20231212
  Transmission Date: 20240110
  Serious: Yes (Other)
  Sender: FDA-Public Use
  Company Number: US-SANDOZ-SDZ2023US066457

PATIENT
  Age: 35 Year
  Sex: Female

DRUGS (2)
  1. METOCLOPRAMIDE [Suspect]
     Active Substance: METOCLOPRAMIDE
     Indication: Product used for unknown indication
     Dosage: 10 MG, DAILY
     Route: 065
  2. PROMETHAZINE [Suspect]
     Active Substance: PROMETHAZINE HYDROCHLORIDE
     Indication: Product used for unknown indication
     Dosage: 25 MG, PRN
     Route: 065

REACTIONS (1)
  - Hyperprolactinaemia [Unknown]
